FAERS Safety Report 6336821-8 (Version None)
Quarter: 2009Q3

REPORT INFORMATION
  Report Type: 
  Country: None (occurrence: None)
  Receive Date: 20090831
  Receipt Date: 20090831
  Transmission Date: 20100115
  Serious: Yes (Life-Threatening, Hospitalization, Other)
  Sender: FDA-Public Use
  Company Number: None

PATIENT
  Sex: Female
  Weight: 85.7298 kg

DRUGS (2)
  1. ABILIFY [Suspect]
     Indication: MENOPAUSAL SYMPTOMS
     Dosage: LOWEST DOSE 1X DAY PO
     Route: 048
  2. ABILIFY [Suspect]
     Indication: MOOD ALTERED
     Dosage: LOWEST DOSE 1X DAY PO
     Route: 048

REACTIONS (5)
  - DEEP VEIN THROMBOSIS [None]
  - OEDEMA PERIPHERAL [None]
  - PULMONARY EMBOLISM [None]
  - SENSATION OF HEAVINESS [None]
  - WEIGHT INCREASED [None]
